FAERS Safety Report 6626888-1 (Version None)
Quarter: 2010Q1

REPORT INFORMATION
  Report Type: 
  Country: None (occurrence: None)
  Receive Date: 20100308
  Receipt Date: 20100223
  Transmission Date: 20100710
  Serious: Yes (Hospitalization)
  Sender: FDA-Public Use
  Company Number: 2010AL001215

PATIENT
  Age: 48 Year
  Sex: Female

DRUGS (6)
  1. DIAZEPAM TAB [Suspect]
     Dosage: 30 MG; QD; PO
     Route: 048
     Dates: start: 20090811, end: 20090824
  2. MIRTAZAPINE [Suspect]
     Dosage: 45 MG; QD; PO
     Route: 048
     Dates: start: 20090601, end: 20091030
  3. VENLAFAXINE HCL [Suspect]
     Dosage: 150 MG; QD; PO
     Route: 048
     Dates: start: 20090722, end: 20091003
  4. QUETIAPINE [Concomitant]
  5. BIOHEXAL [Concomitant]
  6. PANTOPRAZOLE [Concomitant]

REACTIONS (8)
  - DEPRESSION [None]
  - DRUG INTERACTION [None]
  - DYSURIA [None]
  - FLANK PAIN [None]
  - PHYTOTHERAPY [None]
  - PYREXIA [None]
  - TREATMENT NONCOMPLIANCE [None]
  - URINARY RETENTION [None]
